FAERS Safety Report 5722559-4 (Version None)
Quarter: 2008Q2

REPORT INFORMATION
  Report Type: 
  Country: None (occurrence: None)
  Receive Date: 20080429
  Receipt Date: 20070927
  Transmission Date: 20081010
  Serious: Yes (Hospitalization)
  Sender: FDA-Public Use
  Company Number: US-ASTRAZENECA-2007UW22729

PATIENT
  Age: 36 Year
  Sex: Female
  Weight: 86.2 kg

DRUGS (9)
  1. NEXIUM [Suspect]
     Indication: GASTROOESOPHAGEAL REFLUX DISEASE
     Route: 048
     Dates: start: 20070301, end: 20070926
  2. MUCINEX [Concomitant]
  3. CYMBALTA [Concomitant]
  4. CLONIDINE HCL [Concomitant]
  5. EQUATE [Concomitant]
  6. STOOL SOFTENER [Concomitant]
  7. NATURES BOUNTY [Concomitant]
  8. HOODIA GORDONII [Concomitant]
  9. MCNEI [Concomitant]

REACTIONS (4)
  - ABDOMINAL PAIN UPPER [None]
  - DYSPNOEA [None]
  - HYPERHIDROSIS [None]
  - TACHYCARDIA [None]
